FAERS Safety Report 7180011-6 (Version None)
Quarter: 2010Q4

REPORT INFORMATION
  Report Type: 
  Country: None (occurrence: None)
  Receive Date: 20101221
  Receipt Date: 20101215
  Transmission Date: 20110411
  Serious: Yes (Other)
  Sender: FDA-Public Use
  Company Number: US-PFIZER INC-2010123588

PATIENT
  Sex: Female
  Weight: 48.073 kg

DRUGS (5)
  1. DETROL LA [Interacting]
     Indication: POLLAKIURIA
     Dosage: 2 MG, 1X/DAY
     Route: 048
  2. POTASSIUM CHLORIDE [Suspect]
     Dosage: 10 MEQ, UNK
     Dates: end: 20101101
  3. BUMEX [Interacting]
     Indication: DIURETIC THERAPY
     Dosage: 1 MG, 1X/DAY
     Route: 048
     Dates: start: 20100101, end: 20101101
  4. ATENOLOL [Concomitant]
     Indication: CARDIAC DISORDER
     Dosage: 12.5 MG, 1X/DAY
     Route: 048
  5. ACETYLSALICYLIC ACID [Concomitant]
     Indication: ANTICOAGULANT THERAPY
     Dosage: 325 MG, UNK
     Route: 048

REACTIONS (3)
  - CARDIAC OPERATION [None]
  - DRUG INTERACTION [None]
  - JOINT SWELLING [None]
